FAERS Safety Report 10255137 (Version 1)
Quarter: 2014Q2

REPORT INFORMATION
  Report Type: Report from Study
  Country: TN (occurrence: TN)
  Receive Date: 20140624
  Receipt Date: 20140624
  Transmission Date: 20141212
  Serious: Yes (Death, Hospitalization)
  Sender: FDA-Public Use
  Company Number: TN-SA-2014SA078240

PATIENT
  Age: 60 Year
  Sex: Male

DRUGS (6)
  1. PLAVIX [Suspect]
     Indication: MYOCARDIAL INFARCTION
     Route: 048
     Dates: start: 201302, end: 201402
  2. ASPIRIN [Concomitant]
     Route: 048
  3. CARDENSIEL [Concomitant]
     Route: 048
  4. TRIATEC [Concomitant]
     Route: 048
  5. ATORVASTATIN [Concomitant]
     Route: 048
  6. INSULIN [Concomitant]
     Route: 048

REACTIONS (2)
  - Cardiac failure [Fatal]
  - Cardio-respiratory arrest [Fatal]
